FAERS Safety Report 7014558-X (Version None)
Quarter: 2010Q3

REPORT INFORMATION
  Report Type: 
  Country: None (occurrence: None)
  Receive Date: 20100927
  Receipt Date: 20100914
  Transmission Date: 20110219
  Serious: Yes (Hospitalization)
  Sender: FDA-Public Use
  Company Number: FR-NOVOPROD-314977

PATIENT
  Age: 72 Year
  Sex: Female

DRUGS (4)
  1. INSULATARD [Suspect]
     Indication: TYPE 2 DIABETES MELLITUS
     Dosage: UK/SC
     Route: 058
     Dates: end: 20100720
  2. METFORMIN [Concomitant]
     Indication: TYPE 2 DIABETES MELLITUS
     Dosage: UNK
     Route: 048
     Dates: end: 20100720
  3. TRIATEC                            /00116401/ [Concomitant]
     Dosage: UNK
     Route: 048
     Dates: end: 20100720
  4. ISOPTIN [Concomitant]
     Dosage: UNK
     Route: 048
     Dates: end: 20100720

REACTIONS (7)
  - ANAEMIA MACROCYTIC [None]
  - DEPRESSED LEVEL OF CONSCIOUSNESS [None]
  - HYPOGLYCAEMIA [None]
  - LACTIC ACIDOSIS [None]
  - OVERDOSE [None]
  - RENAL FAILURE ACUTE [None]
  - VITAMIN B12 DEFICIENCY [None]
